FAERS Safety Report 18877331 (Version 1)
Quarter: 2021Q1

REPORT INFORMATION
  Report Type: Spontaneous
  Country: US (occurrence: US)
  Receive Date: 20210211
  Receipt Date: 20210211
  Transmission Date: 20210420
  Serious: No
  Sender: FDA-Public Use
  Company Number: US-ASTRAZENECA-2021A037430

PATIENT

DRUGS (1)
  1. PRILOSEC [Suspect]
     Active Substance: OMEPRAZOLE MAGNESIUM
     Dosage: UNK (I HAVE BEEN USING YOUR PRODUCT FOR ABOUT 5 YEARS )
     Route: 048
     Dates: start: 2016

REACTIONS (3)
  - Condition aggravated [Unknown]
  - Asthma [Unknown]
  - Eczema [Unknown]
